FAERS Safety Report 12407738 (Version 1)
Quarter: 2016Q2

REPORT INFORMATION
  Report Type: Spontaneous
  Country: FR (occurrence: FR)
  Receive Date: 20160526
  Receipt Date: 20160526
  Transmission Date: 20160815
  Serious: Yes (Hospitalization, Other)
  Sender: FDA-Public Use
  Company Number: FR-GLAXOSMITHKLINE-FR2016GSK074208

PATIENT
  Age: 59 Year
  Sex: Male

DRUGS (15)
  1. KETOPROFENE [Suspect]
     Active Substance: KETOPROFEN
     Dosage: 100 MG, QD
     Route: 048
  2. SIMPONI [Suspect]
     Active Substance: GOLIMUMAB
     Indication: ANKYLOSING SPONDYLITIS
     Dosage: 50 MG, Z
     Route: 058
     Dates: start: 201507
  3. KARDEGIC [Concomitant]
     Active Substance: ASPIRIN LYSINE
     Dosage: UNK
     Dates: start: 2016
  4. LAMICTAL [Suspect]
     Active Substance: LAMOTRIGINE
     Indication: MENTAL DISORDER
     Dosage: 200 MG, QD
     Route: 048
  5. LAROXYL [Suspect]
     Active Substance: AMITRIPTYLINE
     Indication: MENTAL DISORDER
     Dosage: 40 MG, QD
     Route: 048
  6. XEROQUEL [Concomitant]
     Active Substance: QUETIAPINE FUMARATE
     Dosage: UNK
  7. RISPERDAL [Suspect]
     Active Substance: RISPERIDONE
     Indication: MENTAL DISORDER
     Dosage: 2 MG, QD
     Route: 048
  8. KETOPROFENE [Suspect]
     Active Substance: KETOPROFEN
     Indication: ANKYLOSING SPONDYLITIS
     Dosage: 100 MG, BID
     Route: 042
     Dates: start: 201604, end: 201604
  9. AMLOR [Suspect]
     Active Substance: AMLODIPINE BESYLATE
     Indication: HYPERTENSION
     Dosage: 10 MG, QD
     Route: 048
  10. AMAREL [Suspect]
     Active Substance: GLIMEPIRIDE
     Indication: DIABETES MELLITUS
     Dosage: 2 MG, QD
     Route: 048
  11. DEROXAT [Suspect]
     Active Substance: PAROXETINE HYDROCHLORIDE
     Indication: DEPRESSION
     Dosage: UNK
     Route: 048
  12. ESOMEPRAZOLE [Suspect]
     Active Substance: ESOMEPRAZOLE
     Indication: PROPHYLAXIS AGAINST GASTROINTESTINAL ULCER
     Dosage: 20 MG, QD
     Route: 048
  13. DEROXAT [Suspect]
     Active Substance: PAROXETINE HYDROCHLORIDE
     Indication: MENTAL DISORDER
  14. COTAREG [Suspect]
     Active Substance: HYDROCHLOROTHIAZIDE\VALSARTAN
     Indication: HYPERTENSION
     Dosage: 1 DF, QD
     Route: 048
  15. OXYCONTIN [Concomitant]
     Active Substance: OXYCODONE HYDROCHLORIDE
     Dosage: UNK
     Dates: start: 2016

REACTIONS (2)
  - Incorrect dose administered [Unknown]
  - Facial paralysis [Not Recovered/Not Resolved]

NARRATIVE: CASE EVENT DATE: 20160429
